FAERS Safety Report 8947099 (Version 1)
Quarter: 2012Q4

REPORT INFORMATION
  Report Type: 
  Country: US (occurrence: US)
  Receive Date: 20121205
  Receipt Date: 20121205
  Transmission Date: 20130627
  Serious: No
  Sender: FDA-Public Use
  Company Number: US-PFIZER INC-2012302159

PATIENT
  Sex: Male
  Weight: 81.63 kg

DRUGS (5)
  1. AMLODIPINE BESILATE [Suspect]
     Indication: BLOOD PRESSURE HIGH
     Dosage: 10 mg, daily
  2. LISINOPRIL [Suspect]
     Indication: BLOOD PRESSURE HIGH
     Dosage: 40 mg, daily
  3. HUMALOG [Concomitant]
     Indication: DIABETES
     Dosage: 4 IU, daily
  4. LANTUS [Concomitant]
     Indication: DIABETES
     Dosage: UNK, daily
  5. CHLORTHALIDONE [Concomitant]
     Indication: DIURETIC THERAPY
     Dosage: UNK

REACTIONS (1)
  - Erectile dysfunction [Not Recovered/Not Resolved]
